FAERS Safety Report 19906158 (Version 1)
Quarter: 2021Q4

REPORT INFORMATION
  Report Type: Report from Study
  Country: FR (occurrence: FR)
  Receive Date: 20211001
  Receipt Date: 20211001
  Transmission Date: 20220303
  Serious: Yes (Hospitalization)
  Sender: FDA-Public Use
  Company Number: FR-CELGENE-FRA-20210907280

PATIENT
  Age: 75 Year
  Sex: Female

DRUGS (10)
  1. AZACITIDINE [Suspect]
     Active Substance: AZACITIDINE
     Indication: Acute myeloid leukaemia
     Route: 058
     Dates: start: 20191029
  2. CUSATUZUMAB [Suspect]
     Active Substance: CUSATUZUMAB
     Indication: Acute myeloid leukaemia
     Route: 041
     Dates: start: 20191031
  3. ATENOLOL [Concomitant]
     Active Substance: ATENOLOL
     Indication: Hypertension
     Route: 048
  4. BACTRIM [Concomitant]
     Active Substance: SULFAMETHOXAZOLE\TRIMETHOPRIM
     Indication: Antibiotic prophylaxis
     Dosage: 342.8571 MILLIGRAM
     Route: 048
     Dates: start: 20191018
  5. VALACYCLOVIR HYDROCHLORIDE [Concomitant]
     Active Substance: VALACYCLOVIR HYDROCHLORIDE
     Indication: Viral infection
     Dosage: 1000 MILLIGRAM
     Route: 048
     Dates: start: 20191018
  6. LEUCOVORIN CALCIUM [Concomitant]
     Active Substance: LEUCOVORIN CALCIUM
     Indication: Prophylaxis
     Dosage: 3.5714 MILLIGRAM
     Route: 048
     Dates: start: 20191018
  7. ENOXAPARIN SODIUM [Concomitant]
     Active Substance: ENOXAPARIN SODIUM
     Indication: Venous thrombosis
     Dosage: 3.5714 MILLIGRAM
     Route: 058
     Dates: start: 20191010
  8. FUNGIZONE [Concomitant]
     Active Substance: AMPHOTERICIN B
     Indication: Antifungal prophylaxis
     Dosage: 3.5714 MILLIGRAM
     Route: 048
     Dates: start: 20191018
  9. AUGMENTIN [Concomitant]
     Active Substance: AMOXICILLIN\CLAVULANATE POTASSIUM
     Indication: Pyrexia
     Route: 065
     Dates: start: 20191018, end: 20191124
  10. CIPROFLOXACIN [Concomitant]
     Active Substance: CIPROFLOXACIN
     Indication: Pyrexia
     Route: 065
     Dates: start: 20191018, end: 20191124

REACTIONS (1)
  - Erysipelas [Not Recovered/Not Resolved]

NARRATIVE: CASE EVENT DATE: 20191123
